FAERS Safety Report 23461165 (Version 2)
Quarter: 2024Q1

REPORT INFORMATION
  Report Type: Other
  Country: None (occurrence: JP)
  Receive Date: 20240131
  Receipt Date: 20240206
  Transmission Date: 20240409
  Serious: Yes (Other)
  Sender: FDA-Public Use
  Company Number: JP-ARGENX-2022-ARGX-JP002272AA

PATIENT
  Age: 42 Year
  Sex: Female

DRUGS (1)
  1. VYVGART [Suspect]
     Active Substance: EFGARTIGIMOD ALFA-FCAB

REACTIONS (1)
  - Pancreatic carcinoma [None]
